FAERS Safety Report 15759576 (Version 10)
Quarter: 2020Q4

REPORT INFORMATION
  Report Type: Report from Study
  Country: None (occurrence: NL)
  Receive Date: 20181226
  Receipt Date: 20201127
  Transmission Date: 20210113
  Serious: Yes (Hospitalization, Other)
  Sender: FDA-Public Use
  Company Number: NL-ABBVIE-17K-114-1851025-00

PATIENT
  Age: 65 Year
  Sex: Female
  Weight: 70 kg

DRUGS (6)
  1. SINEMET CR [Concomitant]
     Active Substance: CARBIDOPA\LEVODOPA
     Indication: PARKINSON^S DISEASE
     Dosage: 1 EXTRA DOS FOR THE NIGHT
  2. DUODOPA [Suspect]
     Active Substance: CARBIDOPA\LEVODOPA
     Dosage: MD: 12.0, CD: 2.1, ED: 2.0; 16 HOUR ADMINISTRATION
     Route: 050
  3. DUODOPA [Suspect]
     Active Substance: CARBIDOPA\LEVODOPA
     Dosage: MD: 12.0 ML, CD: 2.3 ML/H, ED: 2.0 ML.
     Route: 050
  4. TEMAZEPAM. [Concomitant]
     Active Substance: TEMAZEPAM
     Indication: SOMNOLENCE
  5. DUODOPA [Suspect]
     Active Substance: CARBIDOPA\LEVODOPA
     Dosage: MD 12 ML, CD 2.0 ML/HR, ED 2.0 ML.?USE OF PUMP: 16 HOURS ADMINISTRATION, 1 CASSETTE.
     Route: 050
  6. DUODOPA [Suspect]
     Active Substance: CARBIDOPA\LEVODOPA
     Indication: PARKINSON^S DISEASE
     Dosage: MD 13, CD 2.2, ED 2.0, 16 HOUR ADMINISTRATION
     Route: 050
     Dates: start: 20170112

REACTIONS (38)
  - Epilepsy [Not Recovered/Not Resolved]
  - Bradyphrenia [Not Recovered/Not Resolved]
  - Weight fluctuation [Unknown]
  - Therapeutic product effect variable [Not Recovered/Not Resolved]
  - Fibroma [Not Recovered/Not Resolved]
  - Bowel movement irregularity [Not Recovered/Not Resolved]
  - Fall [Unknown]
  - Stoma site erythema [Recovered/Resolved]
  - Drug ineffective [Recovered/Resolved]
  - Pulmonary embolism [Recovered/Resolved]
  - Decreased appetite [Recovered/Resolved]
  - Muscle rigidity [Not Recovered/Not Resolved]
  - Nervousness [Unknown]
  - Polyneuropathy [Not Recovered/Not Resolved]
  - Dyskinesia [Recovered/Resolved]
  - Middle insomnia [Not Recovered/Not Resolved]
  - On and off phenomenon [Recovering/Resolving]
  - General physical health deterioration [Not Recovered/Not Resolved]
  - Hyperthyroidism [Not Recovered/Not Resolved]
  - Freezing phenomenon [Not Recovered/Not Resolved]
  - Nightmare [Not Recovered/Not Resolved]
  - Stoma site discharge [Recovered/Resolved]
  - Stoma site erythema [Recovered/Resolved]
  - Constipation [Not Recovered/Not Resolved]
  - Device issue [Unknown]
  - Fibroma [Recovered/Resolved]
  - Dyschezia [Recovered/Resolved]
  - Tension [Not Recovered/Not Resolved]
  - Propulsive gait [Not Recovered/Not Resolved]
  - Weight decreased [Recovered/Resolved]
  - Peroneal nerve palsy [Not Recovered/Not Resolved]
  - Mobility decreased [Not Recovered/Not Resolved]
  - Fall [Recovered/Resolved]
  - Stoma site discharge [Recovered/Resolved]
  - Abnormal dreams [Not Recovered/Not Resolved]
  - Enuresis [Not Recovered/Not Resolved]
  - Extra dose administered [Unknown]
  - Parkinson^s disease [Not Recovered/Not Resolved]

NARRATIVE: CASE EVENT DATE: 2017
